FAERS Safety Report 8877120 (Version 1)
Quarter: 2012Q4

REPORT INFORMATION
  Report Type: Spontaneous
  Country: US (occurrence: None)
  Receive Date: 20121101
  Receipt Date: 20121101
  Transmission Date: 20130627
  Serious: Yes (Other)
  Sender: FDA-Public Use
  Company Number: None

PATIENT
  Age: 69 Year
  Sex: Female
  Weight: 63.5 kg

DRUGS (8)
  1. AVASTIN [Suspect]
     Dosage: Intraocular
     Route: 031
  2. NEXIUM [Concomitant]
  3. METFORMIN [Concomitant]
  4. QUETIAPINE [Concomitant]
  5. LISINOPRIL [Concomitant]
  6. ONGLYZA [Concomitant]
  7. LAMOTRIGINE [Concomitant]
  8. SIMVASTATIN [Concomitant]

REACTIONS (3)
  - Eye pain [None]
  - Eye swelling [None]
  - Ocular hyperaemia [None]
